FAERS Safety Report 9407359 (Version 1)
Quarter: 2013Q3

REPORT INFORMATION
  Report Type: Spontaneous
  Country: US (occurrence: US)
  Receive Date: 20130718
  Receipt Date: 20130718
  Transmission Date: 20140515
  Serious: Yes (Other)
  Sender: FDA-Public Use
  Company Number: US-PFIZER INC-2013207832

PATIENT
  Age: 45 Year
  Sex: Female
  Weight: 59 kg

DRUGS (3)
  1. CYTOMEL [Suspect]
     Indication: THYROID FUNCTION TEST ABNORMAL
     Dosage: 2.5 UG, 2X/DAY
     Dates: start: 2003
  2. METFORMIN HCL [Suspect]
     Indication: POLYCYSTIC OVARIES
     Dosage: 250 MG, 2X/DAY
  3. SYNTHROID [Suspect]
     Indication: HYPOTHYROIDISM
     Dosage: 90 UG, 1X/DAY
     Dates: start: 2013

REACTIONS (6)
  - Coeliac disease [Not Recovered/Not Resolved]
  - Gastrointestinal disorder [Not Recovered/Not Resolved]
  - Malabsorption [Not Recovered/Not Resolved]
  - Weight decreased [Not Recovered/Not Resolved]
  - Food allergy [Not Recovered/Not Resolved]
  - Malaise [Not Recovered/Not Resolved]
